FAERS Safety Report 8450915-2 (Version None)
Quarter: 2012Q2

REPORT INFORMATION
  Report Type: 
  Country: None (occurrence: None)
  Receive Date: 20120604
  Receipt Date: 20120521
  Transmission Date: 20120825
  Serious: Yes (Other)
  Sender: FDA-Public Use
  Company Number: 2011028469

PATIENT
  Sex: Male
  Weight: 88.905 kg

DRUGS (28)
  1. ASPIRIN [Concomitant]
  2. VITAMIN B12 [Concomitant]
  3. HIZENTRA [Suspect]
     Indication: IMMUNODEFICIENCY COMMON VARIABLE
     Dosage: SEE IMAGE
     Route: 058
     Dates: start: 20120313, end: 20120313
  4. HIZENTRA [Suspect]
     Indication: IMMUNODEFICIENCY COMMON VARIABLE
     Dosage: SEE IMAGE
     Route: 058
     Dates: start: 20120313, end: 20120313
  5. HIZENTRA [Suspect]
     Indication: IMMUNODEFICIENCY COMMON VARIABLE
     Dosage: SEE IMAGE
     Route: 058
     Dates: start: 20110329
  6. HIZENTRA [Suspect]
     Indication: IMMUNODEFICIENCY COMMON VARIABLE
     Dosage: SEE IMAGE
     Route: 058
     Dates: start: 20110315
  7. HIZENTRA [Suspect]
     Indication: IMMUNODEFICIENCY COMMON VARIABLE
     Dosage: SEE IMAGE
     Route: 058
     Dates: start: 20110329
  8. HIZENTRA [Suspect]
     Indication: IMMUNODEFICIENCY COMMON VARIABLE
     Dosage: SEE IMAGE
     Route: 058
     Dates: start: 20110329
  9. HIZENTRA [Suspect]
     Indication: IMMUNODEFICIENCY COMMON VARIABLE
     Dosage: SEE IMAGE
     Route: 058
     Dates: start: 20120313, end: 20120313
  10. HIZENTRA [Suspect]
  11. NEXIUM [Concomitant]
  12. BENADRYL [Concomitant]
  13. HIZENTRA [Suspect]
  14. IBUPROFEN [Concomitant]
  15. HIZENTRA [Suspect]
  16. LIPITOR [Concomitant]
  17. SIMVASTATIN [Concomitant]
  18. OMEPRAZOLE [Concomitant]
  19. GABAPENTIN [Concomitant]
  20. EPIPEN [Concomitant]
  21. METFORMIN HCL [Concomitant]
  22. HIZENTRA [Suspect]
  23. HIZENTRA [Suspect]
  24. CYMBALTA [Concomitant]
  25. MULTIVITAMIN (MULTIVITAMIN /00831701/) [Concomitant]
  26. LMX (ANESTHETICS, LOCAL) [Concomitant]
  27. PRAVASTATIN [Concomitant]
  28. DIPHENHYDRAMINE HCL [Concomitant]

REACTIONS (7)
  - ERYTHEMA [None]
  - FLUSHING [None]
  - INSOMNIA [None]
  - BLOOD ALKALINE PHOSPHATASE INCREASED [None]
  - ASPARTATE AMINOTRANSFERASE INCREASED [None]
  - FATIGUE [None]
  - ALANINE AMINOTRANSFERASE INCREASED [None]
